FAERS Safety Report 4332393-8 (Version None)
Quarter: 2004Q2

REPORT INFORMATION
  Report Type: 
  Country: None (occurrence: None)
  Receive Date: 20040401
  Receipt Date: 20040319
  Transmission Date: 20050107
  Serious: Yes (Other)
  Sender: FDA-Public Use
  Company Number: 2004016409

PATIENT
  Age: 21 Year
  Sex: Female

DRUGS (4)
  1. VIAGRA [Suspect]
     Indication: PULMONARY HYPERTENSION
     Dosage: 15 MG (DAILY), ORAL
     Route: 048
     Dates: start: 20031218
  2. PIMOBENDAN    (PIMOBENDAN) [Suspect]
     Indication: ILL-DEFINED DISORDER
     Dosage: ORAL
     Route: 048
     Dates: start: 20031218
  3. VALPROATE SODIUM [Concomitant]
  4. CLONAZEPAM [Concomitant]

REACTIONS (2)
  - BLEPHAROSPASM [None]
  - LOSS OF CONSCIOUSNESS [None]
